FAERS Safety Report 9721859 (Version 2)
Quarter: 2014Q1

REPORT INFORMATION
  Report Type: Spontaneous
  Country: US (occurrence: US)
  Receive Date: 20131201
  Receipt Date: 20140110
  Transmission Date: 20141002
  Serious: No
  Sender: FDA-Public Use
  Company Number: US-TEVA-447411USA

PATIENT
  Age: 27 Year
  Sex: Female

DRUGS (2)
  1. CLARAVIS [Suspect]
     Dates: start: 20130327, end: 20131122
  2. LOESTRIN 24 FE [Concomitant]

REACTIONS (1)
  - Dry eye [Recovered/Resolved]
